FAERS Safety Report 8416559-3 (Version None)
Quarter: 2012Q2

REPORT INFORMATION
  Report Type: 
  Country: None (occurrence: None)
  Receive Date: 20120606
  Receipt Date: 20120529
  Transmission Date: 20120825
  Serious: Yes (Hospitalization, Other)
  Sender: FDA-Public Use
  Company Number: KR-JHP PHARMACEUTICALS, LLC-JHP201200283

PATIENT
  Age: 61 Year
  Sex: Female

DRUGS (7)
  1. LYRICA [Concomitant]
     Dosage: 150 MG, BID
     Route: 048
  2. KETALAR [Suspect]
     Indication: EPIDURAL ANALGESIA
     Dosage: 1 MG, HR
     Route: 008
  3. FAMVIR [Concomitant]
     Dosage: 250 MG, TID
     Route: 048
  4. ROPIVACAINE HYDROCHLORIDE [Suspect]
     Indication: EPIDURAL ANALGESIA
     Dosage: 0.2% AT 4 ML/H
     Route: 008
  5. MORPHINE [Suspect]
     Dosage: 0.4 NG, HR
     Route: 008
  6. MORPHINE [Suspect]
     Indication: EPIDURAL ANALGESIA
     Dosage: 0.2 MG, HR
     Route: 008
  7. ULTRACET [Concomitant]
     Dosage: 1 DF, TID
     Route: 048

REACTIONS (2)
  - OFF LABEL USE [None]
  - MYOCLONUS [None]
